FAERS Safety Report 9220042 (Version 2)
Quarter: 2013Q2

REPORT INFORMATION
  Report Type: Spontaneous
  Country: GB (occurrence: GB)
  Receive Date: 20130409
  Receipt Date: 20130418
  Transmission Date: 20140414
  Serious: Yes (Other)
  Sender: FDA-Public Use
  Company Number: GB-ROCHE-1210911

PATIENT
  Age: 84 Year
  Sex: Male

DRUGS (1)
  1. ACTILYSE [Suspect]
     Indication: THROMBOSIS
     Dosage: 20 UNITS INTRAVENOUSLY AT 30 MINUTES INTERVAL
     Route: 042

REACTIONS (1)
  - Disease recurrence [Recovered/Resolved]
